FAERS Safety Report 12834327 (Version 6)
Quarter: 2017Q1

REPORT INFORMATION
  Report Type: Report from Study
  Country: GB (occurrence: GB)
  Receive Date: 20161010
  Receipt Date: 20170215
  Transmission Date: 20170428
  Serious: No
  Sender: FDA-Public Use
  Company Number: GB-SA-2016SA135164

PATIENT
  Age: 33 Year
  Sex: Female
  Weight: 93.7 kg

DRUGS (9)
  1. VITAMIN C [Concomitant]
     Active Substance: ASCORBIC ACID
     Indication: DRUG THERAPY
     Route: 048
     Dates: start: 201310
  2. PARACETAMOL [Concomitant]
     Active Substance: ACETAMINOPHEN
     Indication: DRUG THERAPY
     Route: 048
     Dates: start: 201204
  3. ALEMTUZUMAB [Suspect]
     Active Substance: ALEMTUZUMAB
     Indication: RELAPSING-REMITTING MULTIPLE SCLEROSIS
     Dosage: INTENDED DOSE: 36 MG
     Route: 042
     Dates: start: 20090420, end: 20090422
  4. ALEMTUZUMAB [Suspect]
     Active Substance: ALEMTUZUMAB
     Indication: RELAPSING-REMITTING MULTIPLE SCLEROSIS
     Route: 042
     Dates: start: 20140818, end: 20140820
  5. VITAMIN D [Concomitant]
     Active Substance: CHOLECALCIFEROL
     Indication: PROPHYLAXIS
     Route: 048
     Dates: start: 201004
  6. AMANTADINE [Concomitant]
     Active Substance: AMANTADINE
     Indication: DRUG THERAPY
     Route: 048
     Dates: start: 20130410
  7. TRAMADOL. [Concomitant]
     Active Substance: TRAMADOL
     Indication: DRUG THERAPY
     Route: 048
     Dates: start: 20120511
  8. ALEMTUZUMAB [Suspect]
     Active Substance: ALEMTUZUMAB
     Indication: RELAPSING-REMITTING MULTIPLE SCLEROSIS
     Dosage: DOSE: 60 MG
     Route: 042
     Dates: start: 20080421, end: 20080425
  9. COCODAMOL [Concomitant]
     Active Substance: ACETAMINOPHEN\CODEINE PHOSPHATE
     Indication: DRUG THERAPY
     Route: 048
     Dates: start: 20120511

REACTIONS (1)
  - Thrombocytopenia [Recovered/Resolved]

NARRATIVE: CASE EVENT DATE: 20160707
